FAERS Safety Report 17351798 (Version 2)
Quarter: 2020Q1

REPORT INFORMATION
  Report Type: Report from Study
  Country: BR (occurrence: BR)
  Receive Date: 20200130
  Receipt Date: 20200304
  Transmission Date: 20200409
  Serious: Yes (Disabling, Other)
  Sender: FDA-Public Use
  Company Number: NVSC2020BR021009

PATIENT
  Age: 73 Year
  Sex: Female

DRUGS (2)
  1. COSENTYX [Suspect]
     Active Substance: SECUKINUMAB
     Indication: ANKYLOSING SPONDYLITIS
     Dosage: UNK UNK, UNKNOWN
     Route: 065
     Dates: start: 201811
  2. COSENTYX [Suspect]
     Active Substance: SECUKINUMAB
     Dosage: UNK UNK, UNKNOWN
     Route: 065
     Dates: start: 20181109, end: 20200105

REACTIONS (8)
  - Pain [Not Recovered/Not Resolved]
  - Dizziness [Not Recovered/Not Resolved]
  - Drug hypersensitivity [Not Recovered/Not Resolved]
  - Breast cancer [Not Recovered/Not Resolved]
  - Gait inability [Recovering/Resolving]
  - Pruritus [Not Recovered/Not Resolved]
  - Insomnia [Unknown]
  - Nervousness [Recovering/Resolving]

NARRATIVE: CASE EVENT DATE: 20200117
